FAERS Safety Report 23692886 (Version 2)
Quarter: 2024Q4

REPORT INFORMATION
  Report Type: Spontaneous
  Country: US (occurrence: US)
  Receive Date: 20240401
  Receipt Date: 20241119
  Transmission Date: 20250115
  Serious: No
  Sender: SANOFI AVENTIS
  Company Number: US-SA-SAC20240326000193

PATIENT
  Age: 2 Year
  Sex: Male

DRUGS (2)
  1. DUPIXENT [Suspect]
     Active Substance: DUPILUMAB
     Indication: Eczema
     Dosage: 200 MG, QOW
     Route: 058
     Dates: start: 202310
  2. DUPIXENT [Suspect]
     Active Substance: DUPILUMAB
     Indication: Food allergy
     Dosage: 200 MG, QOW
     Route: 058
     Dates: start: 202409

REACTIONS (5)
  - Eczema [Unknown]
  - Therapeutic response shortened [Unknown]
  - Product dose omission in error [Unknown]
  - Product use in unapproved indication [Unknown]
  - Erythema [Unknown]

NARRATIVE: CASE EVENT DATE: 20230101
